FAERS Safety Report 12451185 (Version 1)
Quarter: 2016Q2

REPORT INFORMATION
  Report Type: Spontaneous
  Country: US (occurrence: US)
  Receive Date: 20160609
  Receipt Date: 20160609
  Transmission Date: 20160815
  Serious: Yes (Hospitalization)
  Sender: FDA-Public Use
  Company Number: US-PFIZER INC-2016285603

PATIENT
  Age: 69 Year
  Sex: Male
  Weight: 134 kg

DRUGS (1)
  1. LYRICA [Suspect]
     Active Substance: PREGABALIN
     Dosage: 100 MG, 3X/DAY
     Route: 048

REACTIONS (3)
  - Sepsis [Unknown]
  - Atrial fibrillation [Unknown]
  - Urinary tract infection [Unknown]
